FAERS Safety Report 6380210-7 (Version None)
Quarter: 2009Q3

REPORT INFORMATION
  Report Type: 
  Country: None (occurrence: None)
  Receive Date: 20090923
  Receipt Date: 20090905
  Transmission Date: 20100115
  Serious: Yes (Hospitalization)
  Sender: FDA-Public Use
  Company Number: AUR-APL-2009-00591

PATIENT
  Age: 39 Year
  Sex: Male
  Weight: 70 kg

DRUGS (4)
  1. CITALOPRAM HYDROBROMIDE [Suspect]
     Indication: DEPRESSION
     Dosage: 60MG, ORAL
     Route: 048
     Dates: start: 20090604, end: 20090615
  2. RISPERIDONE [Suspect]
     Indication: OBSESSIVE-COMPULSIVE DISORDER
     Dosage: 2MG, ORAL
     Route: 048
     Dates: start: 20090604, end: 20090615
  3. OLANZAPINE [Concomitant]
  4. PROMAZINE HCL [Concomitant]

REACTIONS (10)
  - BLOOD CREATINE PHOSPHOKINASE INCREASED [None]
  - BLOOD PRESSURE FLUCTUATION [None]
  - DROOLING [None]
  - HYPERHIDROSIS [None]
  - HYPOPHAGIA [None]
  - INCONTINENCE [None]
  - LEUKOCYTOSIS [None]
  - MUSCLE RIGIDITY [None]
  - TACHYCARDIA [None]
  - TREMOR [None]
